FAERS Safety Report 10469396 (Version 1)
Quarter: 2014Q3

REPORT INFORMATION
  Report Type: Spontaneous
  Country: US (occurrence: None)
  Receive Date: 20140919
  Receipt Date: 20140919
  Transmission Date: 20150326
  Serious: Yes (Hospitalization, Other)
  Sender: FDA-Public Use
  Company Number: ADR-2014-01682

PATIENT
  Age: 59 Year
  Sex: Male

DRUGS (1)
  1. BACLOFEN INTRATHECAL [Suspect]
     Active Substance: BACLOFEN
     Indication: MUSCLE SPASTICITY
     Dosage: 50, 500, 1000 ^CC^

REACTIONS (9)
  - Vomiting [None]
  - Intestinal obstruction [None]
  - Retching [None]
  - Asthenia [None]
  - Aspiration [None]
  - Malaise [None]
  - Convulsion [None]
  - Volvulus [None]
  - Scar [None]

NARRATIVE: CASE EVENT DATE: 20140725
